FAERS Safety Report 23137350 (Version 2)
Quarter: 2023Q4

REPORT INFORMATION
  Report Type: Spontaneous
  Country: US (occurrence: US)
  Receive Date: 20231102
  Receipt Date: 20231219
  Transmission Date: 20240110
  Serious: Yes (Hospitalization)
  Sender: FDA-Public Use
  Company Number: US-MYLANLABS-2023M1112263

PATIENT
  Age: 80 Year
  Sex: Male

DRUGS (15)
  1. QUETIAPINE [Suspect]
     Active Substance: QUETIAPINE
     Indication: Psychotic disorder
     Dosage: 12.5 MILLIGRAM, HS,  AT BEDTIME
     Route: 065
  2. QUETIAPINE [Suspect]
     Active Substance: QUETIAPINE
     Indication: Rapid eye movement sleep behaviour disorder
  3. CLONAZEPAM [Suspect]
     Active Substance: CLONAZEPAM
     Indication: Rapid eye movement sleep behaviour disorder
     Dosage: 0.5 MILLIGRAM
     Route: 065
  4. RISPERIDONE [Concomitant]
     Active Substance: RISPERIDONE
     Indication: Psychotic disorder
     Dosage: 0.25 MILLIGRAM
     Route: 065
  5. RISPERIDONE [Concomitant]
     Active Substance: RISPERIDONE
     Indication: Anxiety
  6. RISPERIDONE [Concomitant]
     Active Substance: RISPERIDONE
     Indication: Aggression
  7. TEMAZEPAM [Concomitant]
     Active Substance: TEMAZEPAM
     Indication: Nightmare
     Dosage: 7.5 MILLIGRAM
     Route: 065
  8. TEMAZEPAM [Concomitant]
     Active Substance: TEMAZEPAM
     Indication: Rapid eye movement sleep behaviour disorder
  9. PRAZOSIN [Concomitant]
     Active Substance: PRAZOSIN
     Indication: Nightmare
     Dosage: 1 MILLIGRAM
     Route: 065
  10. MELATONIN [Concomitant]
     Active Substance: MELATONIN
     Indication: Nightmare
     Dosage: 3 MILLIGRAM
     Route: 065
  11. MELATONIN [Concomitant]
     Active Substance: MELATONIN
     Indication: Depressive symptom
  12. MELATONIN [Concomitant]
     Active Substance: MELATONIN
     Indication: Night sweats
  13. SERTRALINE [Concomitant]
     Active Substance: SERTRALINE HYDROCHLORIDE
     Indication: Nightmare
     Dosage: 25 MILLIGRAM, QD, IN THE MORNING
     Route: 065
  14. SERTRALINE [Concomitant]
     Active Substance: SERTRALINE HYDROCHLORIDE
     Indication: Depressive symptom
  15. SERTRALINE [Concomitant]
     Active Substance: SERTRALINE HYDROCHLORIDE
     Indication: Night sweats

REACTIONS (8)
  - Sedation complication [Recovered/Resolved]
  - Screaming [Recovered/Resolved]
  - Incoherent [Recovered/Resolved]
  - Loss of personal independence in daily activities [Recovered/Resolved]
  - Paradoxical drug reaction [Recovered/Resolved]
  - Bradykinesia [Unknown]
  - Gait disturbance [Unknown]
  - Off label use [Unknown]
